FAERS Safety Report 20896260 (Version 1)
Quarter: 2022Q2

REPORT INFORMATION
  Report Type: Spontaneous
  Country: US (occurrence: None)
  Receive Date: 20220531
  Receipt Date: 20220531
  Transmission Date: 20220721
  Serious: Yes (Hospitalization)
  Sender: FDA-Public Use
  Company Number: None

PATIENT
  Sex: Female

DRUGS (6)
  1. XOLAIR [Suspect]
     Active Substance: OMALIZUMAB
  2. HYDROCHLOROT TAB [Concomitant]
  3. LOSARTAN POT TAB [Concomitant]
  4. METOPROL SUC TAB [Concomitant]
  5. MONTELUKAST SODIUM [Concomitant]
     Active Substance: MONTELUKAST SODIUM
  6. SINGULAR [Concomitant]

REACTIONS (1)
  - Hernia repair [None]
